FAERS Safety Report 15860189 (Version 1)
Quarter: 2019Q1

REPORT INFORMATION
  Report Type: Spontaneous
  Country: US (occurrence: US)
  Receive Date: 20190123
  Receipt Date: 20190123
  Transmission Date: 20190417
  Serious: No
  Sender: FDA-Public Use
  Company Number: US-GALDERMA-US18009635

PATIENT

DRUGS (1)
  1. EPIDUO [Suspect]
     Active Substance: ADAPALENE\BENZOYL PEROXIDE
     Indication: ACNE CYSTIC
     Dosage: 0.1%/2.5%
     Route: 061
     Dates: start: 2014

REACTIONS (3)
  - Acne [Unknown]
  - Drug effect decreased [Unknown]
  - Seborrhoea [Unknown]
